FAERS Safety Report 5628134-4 (Version None)
Quarter: 2008Q1

REPORT INFORMATION
  Report Type: 
  Country: None (occurrence: None)
  Receive Date: 20080215
  Receipt Date: 20080206
  Transmission Date: 20080703
  Serious: Yes (Other)
  Sender: FDA-Public Use
  Company Number: FR-ELI_LILLY_AND_COMPANY-FR200802001287

PATIENT
  Age: 63 Year
  Sex: Male

DRUGS (1)
  1. GEMZAR [Suspect]
     Indication: NON-SMALL CELL LUNG CANCER
     Dosage: 1250 MG, UNKNOWN
     Route: 042

REACTIONS (3)
  - ASCITES INFECTION [None]
  - GENERALISED OEDEMA [None]
  - PANCYTOPENIA [None]
